FAERS Safety Report 5118041-8 (Version None)
Quarter: 2006Q3

REPORT INFORMATION
  Report Type: 
  Country: None (occurrence: None)
  Receive Date: 20060929
  Receipt Date: 20060925
  Transmission Date: 20061208
  Serious: Yes (Death)
  Sender: FDA-Public Use
  Company Number: US-ROXANE LABORATORIES, INC-2006-DE-05101GD

PATIENT
  Age: 43 Year
  Sex: Female

DRUGS (12)
  1. PREDNISONE [Suspect]
     Indication: SYSTEMIC LUPUS ERYTHEMATOSUS
  2. PREDNISONE [Suspect]
  3. PREDNISONE [Suspect]
  4. PREDNISONE [Suspect]
  5. NAPROXEN [Concomitant]
     Indication: ARTHRALGIA
  6. NAPROXEN [Concomitant]
     Indication: RAYNAUD'S PHENOMENON
  7. HYDROXYCHLOROQUINE SULFATE [Concomitant]
     Indication: ARTHRALGIA
  8. HYDROXYCHLOROQUINE SULFATE [Concomitant]
     Indication: RAYNAUD'S PHENOMENON
  9. NIFEDIPINE [Concomitant]
     Indication: SYSTEMIC LUPUS ERYTHEMATOSUS
  10. PRAZOSIN HCL [Concomitant]
     Indication: SYSTEMIC LUPUS ERYTHEMATOSUS
  11. HEPARIN [Concomitant]
     Indication: ANTICOAGULANT THERAPY
  12. WARFARIN [Concomitant]
     Indication: ANTICOAGULANT THERAPY

REACTIONS (10)
  - DEPRESSED LEVEL OF CONSCIOUSNESS [None]
  - DRUG INEFFECTIVE [None]
  - DYSPHONIA [None]
  - ENDOCARDITIS NONINFECTIVE [None]
  - HYPOPNOEA [None]
  - HYPOTENSION [None]
  - LARYNGEAL ERYTHEMA [None]
  - LARYNGEAL OEDEMA [None]
  - NON-SMALL CELL LUNG CANCER [None]
  - STAPHYLOCOCCAL BACTERAEMIA [None]
